FAERS Safety Report 9049323 (Version 2)
Quarter: 2012Q4

REPORT INFORMATION
  Report Type: Spontaneous
  Country: JP (occurrence: None)
  Receive Date: 20120905
  Receipt Date: 20120912
  Transmission Date: 20130627
  Serious: Yes (Hospitalization)
  Sender: FDA-Public Use
  Company Number: TCI2012A03956

PATIENT
  Age: 70 Year
  Sex: Female

DRUGS (8)
  1. BLOPRESS [Suspect]
     Indication: HYPERTENSION
     Route: 048
     Dates: end: 201205
  2. ROZEREM [Suspect]
     Indication: SLEEP DISORDER
     Route: 048
     Dates: end: 20120712
  3. ROZEREM [Suspect]
     Indication: SLEEP DISORDER
     Dates: start: 201205, end: 20120717
  4. TAKEPRON OD (LANSOPRAZOLE) [Concomitant]
  5. NORVASC (AMLODIPINE BESILATE) [Concomitant]
  6. THREENOFEN (LOXOPROFEN SODIUM) [Concomitant]
  7. FORSENID (SENNOSIDE A+B CALCIUM) [Suspect]
  8. CRAVIT (LEVOFLOXACIN) [Concomitant]

REACTIONS (17)
  - Altered state of consciousness [None]
  - Eating disorder [None]
  - Vomiting [None]
  - Dizziness [None]
  - Cognitive disorder [None]
  - Back pain [None]
  - Malaise [None]
  - Nausea [None]
  - Decreased appetite [None]
  - Spinal compression fracture [None]
  - Kidney enlargement [None]
  - Calculus ureteric [None]
  - Memory impairment [None]
  - Disorientation [None]
  - Communication disorder [None]
  - Dehydration [None]
  - Activities of daily living impaired [None]
